FAERS Safety Report 5032746-9 (Version None)
Quarter: 2006Q2

REPORT INFORMATION
  Report Type: 
  Country: None (occurrence: None)
  Receive Date: 20060620
  Receipt Date: 20060620
  Transmission Date: 20061013
  Serious: Yes (Other)
  Sender: FDA-Public Use
  Company Number: None

PATIENT
  Age: 34 Year
  Sex: Female
  Weight: 61.2356 kg

DRUGS (8)
  1. ABILIFY [Suspect]
     Indication: BIPOLAR DISORDER
     Dosage: 10 MG QD PO
     Route: 048
     Dates: start: 20060612, end: 20060614
  2. ABILIFY [Suspect]
     Indication: MAJOR DEPRESSION
     Dosage: 10 MG QD PO
     Route: 048
     Dates: start: 20060612, end: 20060614
  3. ABILIFY [Suspect]
     Indication: PARANOIA
     Dosage: 10 MG QD PO
     Route: 048
     Dates: start: 20060612, end: 20060614
  4. ABILIFY [Suspect]
     Indication: PSYCHOTIC DISORDER
     Dosage: 10 MG QD PO
     Route: 048
     Dates: start: 20060612, end: 20060614
  5. ABILIFY [Suspect]
     Indication: BIPOLAR DISORDER
     Dosage: 10 MG QD PO
     Route: 048
     Dates: start: 20060619, end: 20060619
  6. ABILIFY [Suspect]
     Indication: MAJOR DEPRESSION
     Dosage: 10 MG QD PO
     Route: 048
     Dates: start: 20060619, end: 20060619
  7. ABILIFY [Suspect]
     Indication: PARANOIA
     Dosage: 10 MG QD PO
     Route: 048
     Dates: start: 20060619, end: 20060619
  8. ABILIFY [Suspect]
     Indication: PSYCHOTIC DISORDER
     Dosage: 10 MG QD PO
     Route: 048
     Dates: start: 20060619, end: 20060619

REACTIONS (2)
  - AGITATION [None]
  - AKATHISIA [None]
